FAERS Safety Report 4700225-1 (Version None)
Quarter: 2005Q2

REPORT INFORMATION
  Report Type: 
  Country: None (occurrence: None)
  Receive Date: 20050623
  Receipt Date: 20050615
  Transmission Date: 20051028
  Serious: Yes (Death)
  Sender: FDA-Public Use
  Company Number: 163-20785-05010333

PATIENT
  Age: 81 Year
  Sex: Female

DRUGS (4)
  1. THALOMID [Suspect]
     Indication: MYELODYSPLASTIC SYNDROME
     Dosage: 500 MG , QD, ORAL
     Route: 048
     Dates: start: 20040805, end: 20051204
  2. LIPITOR [Concomitant]
  3. TYLENOL [Concomitant]
  4. PRINZIDE [Concomitant]

REACTIONS (6)
  - ACUTE MYELOID LEUKAEMIA [None]
  - CHRONIC MYELOMONOCYTIC LEUKAEMIA [None]
  - FATIGUE [None]
  - MALIGNANT NEOPLASM PROGRESSION [None]
  - OEDEMA PERIPHERAL [None]
  - THERAPY NON-RESPONDER [None]
